FAERS Safety Report 4434604-7 (Version None)
Quarter: 2004Q3

REPORT INFORMATION
  Report Type: 
  Country: None (occurrence: None)
  Receive Date: 20040721
  Receipt Date: 20030715
  Transmission Date: 20050211
  Serious: Yes (Disabling)
  Sender: FDA-Public Use
  Company Number: WAES 0307USA01976

PATIENT
  Age: 65 Year
  Sex: Male
  Weight: 97.5234 kg

DRUGS (7)
  1. VIOXX [Suspect]
     Indication: MONARTHRITIS
     Dosage: 25 MG, DAILY, PO
     Route: 048
     Dates: start: 20000101, end: 20010717
  2. VIOXX [Suspect]
     Indication: PAIN
     Dosage: 25 MG, DAILY, PO
     Route: 048
     Dates: start: 20000101, end: 20010717
  3. ALLEGRA [Concomitant]
  4. CHLORPHENIRAMINE MALEATE AND PSEUDOEPHEDRINE HCL [Concomitant]
  5. ZESTRIL [Concomitant]
  6. ZOCOR [Concomitant]
  7. POTASSIUM CHLORIDE [Concomitant]

REACTIONS (1)
  - NEPHRITIS INTERSTITIAL [None]
